FAERS Safety Report 12223558 (Version 3)
Quarter: 2016Q2

REPORT INFORMATION
  Report Type: Spontaneous
  Country: US (occurrence: US)
  Receive Date: 20160330
  Receipt Date: 20160506
  Transmission Date: 20160815
  Serious: Yes (Other)
  Sender: FDA-Public Use
  Company Number: US-MDT-ADR-2016-00147

PATIENT
  Age: 71 Year
  Sex: Male

DRUGS (5)
  1. DILAUDID [Suspect]
     Active Substance: HYDROMORPHONE HYDROCHLORIDE
     Dosage: 5.2 MG/DAY
     Route: 037
  2. BACLOFEN UNKNOWN [Suspect]
     Active Substance: BACLOFEN
     Dosage: 14.97 MCG/DAY
     Route: 037
  3. DILAUDID [Suspect]
     Active Substance: HYDROMORPHONE HYDROCHLORIDE
     Dosage: 2.798 MG/DAY
     Route: 037
  4. CLONIDINE. [Suspect]
     Active Substance: CLONIDINE
     Dosage: 34.97 MCG/DAY
     Route: 037
  5. BACLOFEN UNKNOWN [Suspect]
     Active Substance: BACLOFEN
     Dosage: 65.63 MCG/DAY
     Route: 037

REACTIONS (2)
  - No therapeutic response [Unknown]
  - Therapeutic response decreased [Unknown]
